FAERS Safety Report 9498873 (Version 1)
Quarter: 2013Q3

REPORT INFORMATION
  Report Type: Spontaneous
  Country: CA (occurrence: CA)
  Receive Date: 20130904
  Receipt Date: 20130904
  Transmission Date: 20140515
  Serious: Yes (Death)
  Sender: FDA-Public Use
  Company Number: CA-009507513-1309CAN001607

PATIENT
  Age: 49 Year
  Sex: Male

DRUGS (2)
  1. PEGETRON [Suspect]
     Indication: HEPATITIS C
     Dosage: UNK
     Route: 058
  2. VICTRELIS [Suspect]
     Indication: HEPATITIS C
     Route: 048

REACTIONS (2)
  - Drug ineffective [Fatal]
  - Hepatitis C [Fatal]
